FAERS Safety Report 14019087 (Version 1)
Quarter: 2017Q3

REPORT INFORMATION
  Report Type: Spontaneous
  Country: FR (occurrence: FR)
  Receive Date: 20170928
  Receipt Date: 20170928
  Transmission Date: 20171128
  Serious: Yes (Hospitalization)
  Sender: FDA-Public Use
  Company Number: PHHY2017FR138612

PATIENT

DRUGS (6)
  1. INEXIUM [Concomitant]
     Active Substance: ESOMEPRAZOLE
     Indication: PRODUCT USED FOR UNKNOWN INDICATION
     Route: 065
  2. ASPIRIN. [Suspect]
     Active Substance: ASPIRIN
     Indication: PRODUCT USED FOR UNKNOWN INDICATION
     Dosage: 100 MG, QD
     Route: 048
     Dates: start: 2016
  3. HYDROCORTISONE. [Concomitant]
     Active Substance: HYDROCORTISONE
     Indication: PRODUCT USED FOR UNKNOWN INDICATION
     Dosage: 0.1 %
     Route: 065
  4. FEMARA [Suspect]
     Active Substance: LETROZOLE
     Indication: BREAST CANCER
     Dosage: 2.5 MG, QD (1 DF)
     Route: 048
     Dates: start: 201706
  5. TOVIAZ [Suspect]
     Active Substance: FESOTERODINE FUMARATE
     Indication: STRESS URINARY INCONTINENCE
     Dosage: 4 MG, QD
     Route: 048
     Dates: start: 2015
  6. LEVOTHYROX [Suspect]
     Active Substance: LEVOTHYROXINE
     Indication: HYPOTHYROIDISM
     Dosage: 25 UG, QD (1 DF)
     Route: 048
     Dates: start: 2015

REACTIONS (1)
  - Colitis ischaemic [Recovering/Resolving]

NARRATIVE: CASE EVENT DATE: 20170731
